FAERS Safety Report 25571990 (Version 2)
Quarter: 2025Q3

REPORT INFORMATION
  Report Type: Spontaneous
  Country: CA (occurrence: CA)
  Receive Date: 20250717
  Receipt Date: 20250718
  Transmission Date: 20251021
  Serious: Yes (Other)
  Sender: KARYOPHARM THERAPEUTICS
  Company Number: CA-KARYOPHARM-2024KPT001384

PATIENT

DRUGS (8)
  1. XPOVIO [Suspect]
     Active Substance: SELINEXOR
     Indication: Plasma cell myeloma
     Route: 048
     Dates: start: 20240801
  2. XPOVIO [Suspect]
     Active Substance: SELINEXOR
     Route: 048
     Dates: start: 202505
  3. BORTEZOMIB [Concomitant]
     Active Substance: BORTEZOMIB
  4. DEXAMETHASONE [Concomitant]
     Active Substance: DEXAMETHASONE
  5. LENALIDOMIDE [Concomitant]
     Active Substance: LENALIDOMIDE
  6. MAGNESIUM OXIDE [Concomitant]
     Active Substance: MAGNESIUM OXIDE
  7. ONDANSETRON [Concomitant]
     Active Substance: ONDANSETRON
  8. OLANZAPINE [Concomitant]
     Active Substance: OLANZAPINE

REACTIONS (48)
  - Dyspnoea [Unknown]
  - Physical deconditioning [Unknown]
  - Skin discolouration [Unknown]
  - Muscle spasms [Not Recovered/Not Resolved]
  - Lethargy [Not Recovered/Not Resolved]
  - Paraesthesia [Not Recovered/Not Resolved]
  - Depression [Unknown]
  - Blood magnesium decreased [Unknown]
  - White blood cell count decreased [Unknown]
  - Dyspnoea exertional [Not Recovered/Not Resolved]
  - Lethargy [Recovered/Resolved]
  - Malaise [Unknown]
  - Abdominal discomfort [Unknown]
  - Gingival bleeding [Not Recovered/Not Resolved]
  - Joint swelling [Unknown]
  - Food craving [Recovered/Resolved]
  - Somnolence [Recovered/Resolved]
  - Malaise [Recovered/Resolved]
  - Feeling abnormal [Not Recovered/Not Resolved]
  - Hypertension [Not Recovered/Not Resolved]
  - Neutrophil count abnormal [Unknown]
  - Platelet count abnormal [Unknown]
  - Dyspepsia [Not Recovered/Not Resolved]
  - Full blood count abnormal [Unknown]
  - Nail disorder [Unknown]
  - Heart rate increased [Unknown]
  - Blood creatinine decreased [Unknown]
  - Asthenia [Not Recovered/Not Resolved]
  - Fatigue [Unknown]
  - Weight decreased [Unknown]
  - Vomiting [Not Recovered/Not Resolved]
  - Decreased appetite [Not Recovered/Not Resolved]
  - Nausea [Not Recovered/Not Resolved]
  - Dizziness [Recovered/Resolved]
  - Blood creatinine increased [Not Recovered/Not Resolved]
  - Haemoglobin decreased [Not Recovered/Not Resolved]
  - Nausea [Recovered/Resolved]
  - Diarrhoea [Recovered/Resolved]
  - Platelet count decreased [Not Recovered/Not Resolved]
  - Decreased appetite [Recovered/Resolved]
  - Diarrhoea [Not Recovered/Not Resolved]
  - Heat stroke [Unknown]
  - Light chain analysis increased [Recovering/Resolving]
  - Monoclonal immunoglobulin increased [Unknown]
  - Contusion [Not Recovered/Not Resolved]
  - Accident [Unknown]
  - Wrong technique in product usage process [Recovered/Resolved]
  - Product dose omission issue [Unknown]

NARRATIVE: CASE EVENT DATE: 20240101
